FAERS Safety Report 5381167-8 (Version None)
Quarter: 2007Q3

REPORT INFORMATION
  Report Type: 
  Country: None (occurrence: None)
  Receive Date: 20070706
  Receipt Date: 20070625
  Transmission Date: 20080115
  Serious: Yes (Hospitalization, Other)
  Sender: FDA-Public Use
  Company Number: US-PFIZER INC-2007052685

PATIENT
  Sex: Female

DRUGS (5)
  1. CHANTIX [Suspect]
     Indication: EX-SMOKER
     Dates: start: 20070301, end: 20070611
  2. PLAVIX [Concomitant]
  3. ASPIRIN [Concomitant]
  4. METOPROLOL SUCCINATE [Concomitant]
  5. ISOSORBIDE DINITRATE [Concomitant]

REACTIONS (10)
  - BLOOD TRIGLYCERIDES INCREASED [None]
  - CHEST PAIN [None]
  - DEPRESSED MOOD [None]
  - FATIGUE [None]
  - HYPERTENSION [None]
  - HYPOTHYROIDISM [None]
  - NAUSEA [None]
  - STENT PLACEMENT [None]
  - UNEVALUABLE EVENT [None]
  - WEIGHT INCREASED [None]
